FAERS Safety Report 7555521-X (Version None)
Quarter: 2011Q2

REPORT INFORMATION
  Report Type: 
  Country: None (occurrence: None)
  Receive Date: 20110617
  Receipt Date: 20020917
  Transmission Date: 20111010
  Serious: Yes (Death, Hospitalization)
  Sender: FDA-Public Use
  Company Number: PHBS2002VE11237

PATIENT
  Age: 50 Year
  Sex: Male

DRUGS (1)
  1. STARLIX [Suspect]
     Indication: DIABETES MELLITUS
     Route: 048

REACTIONS (4)
  - INFECTION [None]
  - THERMAL BURN [None]
  - UNEVALUABLE EVENT [None]
  - DEATH [None]
